FAERS Safety Report 6964397-0 (Version None)
Quarter: 2010Q3

REPORT INFORMATION
  Report Type: 
  Country: None (occurrence: None)
  Receive Date: 20100903
  Receipt Date: 20100826
  Transmission Date: 20110219
  Serious: Yes (Other)
  Sender: FDA-Public Use
  Company Number: US-ASTRAZENECA-2007UW21683

PATIENT
  Age: 19141 Day
  Sex: Male
  Weight: 156.5 kg

DRUGS (11)
  1. SEROQUEL [Suspect]
     Indication: DEPRESSION
     Route: 048
     Dates: start: 20000101, end: 20000601
  2. SEROQUEL [Suspect]
     Indication: ANXIETY
     Route: 048
     Dates: start: 20000101, end: 20000601
  3. SEROQUEL [Suspect]
     Route: 048
     Dates: start: 20021001, end: 20040901
  4. SEROQUEL [Suspect]
     Route: 048
     Dates: start: 20021001, end: 20040901
  5. FUROSEMIDE [Concomitant]
     Route: 048
     Dates: start: 19991028
  6. LISINOPRIL [Concomitant]
     Route: 048
     Dates: start: 19991028
  7. SPIRONOLACTONE [Concomitant]
     Route: 048
     Dates: start: 19991028
  8. DIGOXIN [Concomitant]
     Route: 048
     Dates: start: 19991028
  9. ASPIRIN [Concomitant]
     Route: 048
     Dates: start: 19991028
  10. COUMADIN [Concomitant]
     Route: 048
     Dates: start: 19991028
  11. ACETAMINOPHEN [Concomitant]
     Indication: PAIN
     Dosage: 325-650MG IF NEEDED
     Route: 048
     Dates: start: 19991028

REACTIONS (7)
  - BLOOD CHOLESTEROL INCREASED [None]
  - DIABETES MELLITUS [None]
  - DIABETES MELLITUS INADEQUATE CONTROL [None]
  - DIABETIC COMPLICATION [None]
  - DIABETIC NEPHROPATHY [None]
  - HYPERLIPIDAEMIA [None]
  - WEIGHT INCREASED [None]
